FAERS Safety Report 7325861-8 (Version None)
Quarter: 2011Q1

REPORT INFORMATION
  Report Type: 
  Country: None (occurrence: None)
  Receive Date: 20110302
  Receipt Date: 20110222
  Transmission Date: 20110831
  Serious: Yes (Hospitalization)
  Sender: FDA-Public Use
  Company Number: TR-SANOFI-AVENTIS-2011SA011342

PATIENT
  Age: 65 Year
  Sex: Female

DRUGS (3)
  1. TELITHROMYCIN [Suspect]
     Indication: ACUTE SINUSITIS
     Route: 065
  2. TELITHROMYCIN [Interacting]
     Route: 065
  3. AMIODARONE [Interacting]
     Indication: ATRIAL FIBRILLATION
     Route: 065

REACTIONS (2)
  - HEPATITIS [None]
  - DRUG INTERACTION [None]
